FAERS Safety Report 23868131 (Version 1)
Quarter: 2024Q2

REPORT INFORMATION
  Report Type: Spontaneous
  Country: US (occurrence: US)
  Receive Date: 20240517
  Receipt Date: 20240517
  Transmission Date: 20240717
  Serious: Yes (Death, Hospitalization, Other)
  Sender: FDA-Public Use
  Company Number: US-DRL-USA-LIT/USA/24/0007056

PATIENT
  Age: 78 Year
  Sex: Male

DRUGS (2)
  1. DOCETAXEL [Suspect]
     Active Substance: DOCETAXEL\DOCETAXEL ANHYDROUS
     Indication: Prostate cancer metastatic
     Dosage: EVERY 21 DAYS PER THE ANDROGEN ABLATION THERAPY VS COMBINED CHEMO-HORMONAL THERAPY
  2. DOCETAXEL [Suspect]
     Active Substance: DOCETAXEL\DOCETAXEL ANHYDROUS
     Indication: Androgen therapy
     Dosage: CYCLE TWO

REACTIONS (10)
  - Pulmonary embolism [Fatal]
  - Obstructive shock [Fatal]
  - Condition aggravated [Unknown]
  - Tumour lysis syndrome [Unknown]
  - Fatigue [Unknown]
  - Escherichia bacteraemia [Unknown]
  - Acute kidney injury [Unknown]
  - Encephalopathy [Unknown]
  - Disease progression [Unknown]
  - Treatment failure [Unknown]
